FAERS Safety Report 18439101 (Version 3)
Quarter: 2020Q4

REPORT INFORMATION
  Report Type: Spontaneous
  Country: JP (occurrence: JP)
  Receive Date: 20201028
  Receipt Date: 20201118
  Transmission Date: 20210114
  Serious: Yes (Death, Hospitalization, Other)
  Sender: FDA-Public Use
  Company Number: JP-CELGENEUS-JPN-20201006352

PATIENT
  Age: 81 Year
  Sex: Male
  Weight: 34.4 kg

DRUGS (21)
  1. AZACITIDINE. [Suspect]
     Active Substance: AZACITIDINE
     Route: 058
     Dates: start: 202010, end: 20201016
  2. VONOPRAZAN FUMARATE [Concomitant]
     Active Substance: VONOPRAZAN FUMARATE
     Indication: GASTRODUODENAL ULCER
     Dosage: 20 MILLIGRAM
     Route: 048
     Dates: start: 20181201
  3. LOXOPROFEN SODIUM [Concomitant]
     Active Substance: LOXOPROFEN SODIUM
     Indication: LIGAMENT SPRAIN
     Route: 061
     Dates: start: 20190304
  4. VENETOCLAX. [Concomitant]
     Active Substance: VENETOCLAX
     Dosage: 200 MILLIGRAM
     Route: 048
     Dates: start: 20180823, end: 20180823
  5. BIO-THREE [Concomitant]
     Active Substance: HERBALS
     Indication: GASTROINTESTINAL DISORDER
     Route: 048
     Dates: start: 20180726
  6. VENETOCLAX. [Concomitant]
     Active Substance: VENETOCLAX
     Indication: ACUTE MYELOID LEUKAEMIA
     Dosage: 100 MILLIGRAM
     Route: 048
     Dates: start: 20180822, end: 20180822
  7. RAMELTEON [Concomitant]
     Active Substance: RAMELTEON
     Indication: INSOMNIA
     Dosage: AS REQUIRED
     Route: 048
     Dates: start: 20190727
  8. LENOGRASTIM [Concomitant]
     Active Substance: LENOGRASTIM
     Indication: FEBRILE NEUTROPENIA
     Dosage: AS REQUIRED
     Route: 058
     Dates: start: 20200704
  9. VENETOCLAX. [Concomitant]
     Active Substance: VENETOCLAX
     Dosage: 400 MILLIGRAM
     Route: 048
     Dates: start: 20180824, end: 20201015
  10. MIKELUNA COMBINATION OPHTHALMIC SOLUTION [Concomitant]
     Active Substance: CARTEOLOL HYDROCHLORIDE\LATANOPROST
     Indication: GLAUCOMA
     Route: 047
     Dates: start: 2013
  11. PURIFIED SODIUM HYALURONATE [Concomitant]
     Indication: DRY EYE
     Route: 047
     Dates: start: 2013
  12. SODIUM AZULENE SULFONATE [Concomitant]
     Active Substance: SODIUM GUALENATE
     Indication: INFECTION PROPHYLAXIS
     Route: 065
     Dates: start: 20190307
  13. VONOPRAZAN FUMARATE [Concomitant]
     Active Substance: VONOPRAZAN FUMARATE
     Indication: ABDOMINAL PAIN UPPER
  14. WHITE VASELIN [Concomitant]
     Indication: CHAPPED LIPS
     Route: 061
     Dates: start: 20180804
  15. FEBUXOSTAT. [Concomitant]
     Active Substance: FEBUXOSTAT
     Indication: TUMOUR LYSIS SYNDROME
     Dosage: 40 MILLIGRAM
     Route: 048
     Dates: start: 20180727
  16. ACETAMINOPHEN. [Concomitant]
     Active Substance: ACETAMINOPHEN
     Indication: FEBRILE NEUTROPENIA
     Route: 048
     Dates: start: 20200702
  17. LIDOCAINE. [Concomitant]
     Active Substance: LIDOCAINE
     Indication: ORAL PAIN
     Route: 065
     Dates: start: 20190311
  18. AZACITIDINE. [Suspect]
     Active Substance: AZACITIDINE
     Indication: ACUTE MYELOID LEUKAEMIA
     Dosage: 75 MILLIGRAM/SQ. METER
     Route: 058
     Dates: start: 20180822, end: 20201004
  19. POLYMYXIN B SULFATE. [Concomitant]
     Active Substance: POLYMYXIN B SULFATE
     Indication: INFECTION PROPHYLAXIS
     Route: 048
     Dates: start: 20180726
  20. FOLIC ACID. [Concomitant]
     Active Substance: FOLIC ACID
     Indication: FOLATE DEFICIENCY
     Dosage: 135 MILLIGRAM
     Route: 048
     Dates: start: 20190313
  21. ACRINOL [Concomitant]
     Indication: INFUSION SITE EXTRAVASATION
     Dosage: ONE TIME (AS REQUIRED)
     Route: 061
     Dates: start: 20190916

REACTIONS (1)
  - Pneumonia [Fatal]

NARRATIVE: CASE EVENT DATE: 20201016
